FAERS Safety Report 13702187 (Version 1)
Quarter: 2017Q2

REPORT INFORMATION
  Report Type: Report from Study
  Country: None (occurrence: US)
  Receive Date: 20170629
  Receipt Date: 20170629
  Transmission Date: 20170830
  Serious: No
  Sender: FDA-Public Use
  Company Number: US-IPSEN BIOPHARMACEUTICALS, INC.-2014-6179

PATIENT
  Age: 3 Year
  Sex: Female
  Weight: 10 kg

DRUGS (3)
  1. INCRELEX [Suspect]
     Active Substance: MECASERMIN
     Route: 058
     Dates: start: 20141119
  2. INCRELEX [Suspect]
     Active Substance: MECASERMIN
     Indication: PRODUCT USE IN UNAPPROVED INDICATION
     Dosage: NOT REPORTED
     Route: 065
     Dates: start: 201305, end: 201308
  3. INCRELEX [Suspect]
     Active Substance: MECASERMIN
     Indication: GROWTH HORMONE DEFICIENCY
     Route: 058
     Dates: start: 20141102, end: 20141118

REACTIONS (4)
  - Feeling abnormal [Not Recovered/Not Resolved]
  - Crying [Not Recovered/Not Resolved]
  - Overdose [Unknown]
  - Abdominal pain upper [Not Recovered/Not Resolved]

NARRATIVE: CASE EVENT DATE: 201411
